FAERS Safety Report 18642836 (Version 1)
Quarter: 2020Q4

REPORT INFORMATION
  Report Type: Spontaneous
  Country: HU (occurrence: HU)
  Receive Date: 20201221
  Receipt Date: 20201221
  Transmission Date: 20210114
  Serious: Yes (Other)
  Sender: FDA-Public Use
  Company Number: HU-MYLANLABS-2020M1103023

PATIENT
  Age: 29 Year
  Sex: Female

DRUGS (12)
  1. DEXAMETHASONE. [Suspect]
     Active Substance: DEXAMETHASONE
     Indication: PRODUCT USED FOR UNKNOWN INDICATION
     Dosage: UNK
     Route: 037
     Dates: start: 2020
  2. ALGOPYRIN                          /00046501/ [Concomitant]
     Active Substance: AMINOPHENAZONE
     Indication: SYMPTOMATIC TREATMENT
     Dosage: UNK
     Route: 065
     Dates: start: 2020
  3. CYTARABINE. [Suspect]
     Active Substance: CYTARABINE
     Indication: PRODUCT USED FOR UNKNOWN INDICATION
     Dosage: UNK
     Route: 037
     Dates: start: 2020
  4. TASIGNA [Suspect]
     Active Substance: NILOTINIB
     Indication: PRODUCT USED FOR UNKNOWN INDICATION
     Dosage: UNK
     Route: 065
     Dates: start: 2020
  5. TASIGNA [Suspect]
     Active Substance: NILOTINIB
     Dosage: 300 MG, BID
     Route: 065
     Dates: start: 20200706
  6. MANNISOL [Concomitant]
     Indication: SYMPTOMATIC TREATMENT
     Dosage: UNK
     Route: 065
     Dates: start: 2020
  7. METHOTREXATE. [Suspect]
     Active Substance: METHOTREXATE
     Indication: PRODUCT USED FOR UNKNOWN INDICATION
     Dosage: UNK
     Route: 037
     Dates: start: 2020
  8. ONDANSETRON [Suspect]
     Active Substance: ONDANSETRON
     Indication: SYMPTOMATIC TREATMENT
     Dosage: UNK
     Route: 065
     Dates: start: 2020
  9. VITAMIN B6 [Concomitant]
     Active Substance: PYRIDOXINE HYDROCHLORIDE
     Indication: SYMPTOMATIC TREATMENT
     Dosage: UNK
     Route: 065
     Dates: start: 2020
  10. CERUCAL [Concomitant]
     Active Substance: METOCLOPRAMIDE HYDROCHLORIDE
     Indication: SYMPTOMATIC TREATMENT
     Dosage: UNK
     Route: 065
     Dates: start: 2020
  11. MILURIT [Concomitant]
     Active Substance: ALLOPURINOL
     Indication: SYMPTOMATIC TREATMENT
     Dosage: UNK
     Route: 065
     Dates: start: 2020
  12. ORADEXON                           /00016001/ [Concomitant]
     Indication: SYMPTOMATIC TREATMENT
     Dosage: UNK
     Route: 065
     Dates: start: 2020

REACTIONS (6)
  - Pancytopenia [Unknown]
  - Haematocrit increased [Unknown]
  - Platelet count decreased [Unknown]
  - Haemoglobin decreased [Unknown]
  - Blood disorder [Unknown]
  - Weight decreased [Unknown]

NARRATIVE: CASE EVENT DATE: 2020
